FAERS Safety Report 4590403-7 (Version None)
Quarter: 2005Q1

REPORT INFORMATION
  Report Type: 
  Country: None (occurrence: None)
  Receive Date: 20050224
  Receipt Date: 20050214
  Transmission Date: 20050727
  Serious: Yes (Other)
  Sender: FDA-Public Use
  Company Number: US-JNJFOC-20041204214

PATIENT
  Sex: Female
  Weight: 60.78 kg

DRUGS (11)
  1. RISPERDAL CONSTA [Suspect]
     Dosage: 30-NOV-04, SECOND DOSE
     Route: 030
     Dates: start: 20041115
  2. RISPERDAL [Suspect]
     Route: 049
     Dates: start: 20041129, end: 20041207
  3. M.V.I. [Concomitant]
  4. M.V.I. [Concomitant]
  5. M.V.I. [Concomitant]
  6. M.V.I. [Concomitant]
  7. M.V.I. [Concomitant]
  8. M.V.I. [Concomitant]
  9. M.V.I. [Concomitant]
  10. M.V.I. [Concomitant]
  11. ATIVAN [Concomitant]

REACTIONS (2)
  - HEPATIC ENZYME INCREASED [None]
  - HEPATITIS C [None]
